FAERS Safety Report 9011050 (Version 3)
Quarter: 2013Q2

REPORT INFORMATION
  Report Type: Spontaneous
  Country: US (occurrence: US)
  Receive Date: 20130109
  Receipt Date: 20130401
  Transmission Date: 20140414
  Serious: Yes (Other)
  Sender: FDA-Public Use
  Company Number: US-GLAXOSMITHKLINE-A1006906A

PATIENT
  Sex: Female

DRUGS (8)
  1. VENTOLIN HFA [Suspect]
     Indication: BRONCHITIS
     Dosage: 2PUFF VARIABLE DOSE
     Route: 055
  2. OMNICEF [Concomitant]
  3. SOMA [Concomitant]
  4. PHENOBARBITAL [Concomitant]
  5. TYLENOL #4 [Concomitant]
  6. PROMETHAZINE [Concomitant]
  7. MEPERIDINE [Concomitant]
  8. ZANTAC [Concomitant]

REACTIONS (5)
  - Choking [Not Recovered/Not Resolved]
  - Bronchospasm paradoxical [Unknown]
  - Cough [Unknown]
  - Feeling jittery [Unknown]
  - Product quality issue [Unknown]
